FAERS Safety Report 4374383-5 (Version None)
Quarter: 2004Q2

REPORT INFORMATION
  Report Type: 
  Country: None (occurrence: None)
  Receive Date: 20040608
  Receipt Date: 20040608
  Transmission Date: 20050107
  Serious: Yes (Hospitalization)
  Sender: FDA-Public Use
  Company Number: None

PATIENT
  Age: 71 Year
  Sex: Male
  Weight: 59.9 kg

DRUGS (2)
  1. MORPHINE [Suspect]
  2. LORAZEPAM [Suspect]

REACTIONS (2)
  - DRUG EFFECT DECREASED [None]
  - MENTAL STATUS CHANGES [None]
